FAERS Safety Report 7324291-2 (Version None)
Quarter: 2011Q1

REPORT INFORMATION
  Report Type: 
  Country: None (occurrence: None)
  Receive Date: 20110301
  Receipt Date: 20110223
  Transmission Date: 20110831
  Serious: Yes (Other)
  Sender: FDA-Public Use
  Company Number: US-AMGEN-USASP2011010697

PATIENT
  Age: 77 Year
  Sex: Female

DRUGS (4)
  1. ALPRAZOLAM [Concomitant]
     Dosage: UNK
  2. PROLIA [Suspect]
     Indication: OSTEOPOROSIS POSTMENOPAUSAL
     Dates: start: 20110101
  3. PRILOSEC [Concomitant]
     Dosage: UNK
  4. PREVACID [Concomitant]

REACTIONS (8)
  - ASTHENIA [None]
  - PRURITUS GENERALISED [None]
  - BACK PAIN [None]
  - INSOMNIA [None]
  - WEIGHT DECREASED [None]
  - DEPRESSION [None]
  - CHEST PAIN [None]
  - DRY SKIN [None]
